FAERS Safety Report 16685315 (Version 1)
Quarter: 2019Q3

REPORT INFORMATION
  Report Type: Report from Study
  Country: None (occurrence: US)
  Receive Date: 20190808
  Receipt Date: 20190808
  Transmission Date: 20191004
  Serious: Yes (Other)
  Sender: FDA-Public Use
  Company Number: US-ABBVIE-19K-163-2878545-00

PATIENT
  Sex: Female

DRUGS (1)
  1. HUMIRA [Suspect]
     Active Substance: ADALIMUMAB
     Indication: PSORIASIS
     Dosage: CITRATE FREE
     Route: 058

REACTIONS (5)
  - Vascular neoplasm [Unknown]
  - Pruritus allergic [Unknown]
  - Sneezing [Unknown]
  - Hypersensitivity [Unknown]
  - Deafness unilateral [Unknown]

NARRATIVE: CASE EVENT DATE: 2019
